FAERS Safety Report 5066368-0 (Version None)
Quarter: 2006Q3

REPORT INFORMATION
  Report Type: 
  Country: None (occurrence: None)
  Receive Date: 20060728
  Receipt Date: 20060726
  Transmission Date: 20061208
  Serious: Yes (Life-Threatening, Hospitalization, Other)
  Sender: FDA-Public Use
  Company Number: US-2006-001267

PATIENT
  Age: 48 Year
  Sex: Female

DRUGS (12)
  1. MAGNEVIST [Suspect]
     Indication: NUCLEAR MAGNETIC RESONANCE IMAGING BRAIN
     Dosage: 20 ML, 1 DOSE, INTRAVENOUS
     Route: 042
     Dates: start: 20060119, end: 20060119
  2. AVAPRO [Concomitant]
  3. TOPROL-XL [Concomitant]
  4. ADVAIR DISKUS 100/50 [Concomitant]
  5. NASONEX [Concomitant]
  6. PAROXETINE [Concomitant]
  7. ALPRAZOLAM [Concomitant]
  8. NEXIUM [Concomitant]
  9. NORVASC [Concomitant]
  10. NABUMETONE [Concomitant]
  11. ALBUTEROL SPIROS [Concomitant]
  12. MULTIVITAMINS (PANTHENOL, RETINOL) [Concomitant]

REACTIONS (26)
  - ACTIVATED PARTIAL THROMBOPLASTIN TIME PROLONGED [None]
  - ACUTE CORONARY SYNDROME [None]
  - AGITATION [None]
  - ANAPHYLACTIC REACTION [None]
  - BLOOD CREATINE PHOSPHOKINASE MB INCREASED [None]
  - CARDIAC ARREST [None]
  - CARDIO-RESPIRATORY ARREST [None]
  - CEREBROVASCULAR ACCIDENT [None]
  - CONFUSIONAL STATE [None]
  - DRUG HYPERSENSITIVITY [None]
  - DYSPNOEA [None]
  - ELECTROCARDIOGRAM POOR R-WAVE PROGRESSION [None]
  - ELECTROCARDIOGRAM ST SEGMENT ABNORMAL [None]
  - ELECTROCARDIOGRAM ST SEGMENT DEPRESSION [None]
  - ERYTHEMA [None]
  - HYPERTENSION [None]
  - HYPOAESTHESIA [None]
  - HYPOTENSION [None]
  - LARYNGOSPASM [None]
  - MENTAL STATUS CHANGES [None]
  - NAUSEA [None]
  - PYREXIA [None]
  - SENSATION OF HEAVINESS [None]
  - SINUS TACHYCARDIA [None]
  - SUPRAVENTRICULAR TACHYCARDIA [None]
  - WHITE BLOOD CELL COUNT INCREASED [None]
